FAERS Safety Report 8900269 (Version 4)
Quarter: 2012Q4

REPORT INFORMATION
  Report Type: 
  Country: JP (occurrence: JP)
  Receive Date: 20121109
  Receipt Date: 20121228
  Transmission Date: 20130627
  Serious: Yes (Hospitalization, Other)
  Sender: FDA-Public Use
  Company Number: JP-JNJFOC-20121101755

PATIENT
  Age: 91 Year
  Sex: Female

DRUGS (7)
  1. SIMPONI [Suspect]
     Indication: RHEUMATOID ARTHRITIS
     Route: 058
     Dates: start: 20121026
  2. AZULFIDINE EN [Suspect]
     Indication: PRODUCT USED FOR UNKNOWN INDICATION
     Route: 048
     Dates: start: 20121015
  3. RHEUMATREX [Concomitant]
     Route: 048
  4. FOLIAMIN [Concomitant]
     Route: 065
  5. LOXONIN [Concomitant]
     Route: 065
  6. LANSOPRAZOLE [Concomitant]
     Route: 065
  7. PREDONINE [Concomitant]
     Route: 065

REACTIONS (5)
  - Drug eruption [Recovering/Resolving]
  - Pruritus [Recovering/Resolving]
  - Purpura [Recovering/Resolving]
  - Face oedema [Recovering/Resolving]
  - Enanthema [Recovering/Resolving]
